FAERS Safety Report 4760102-7 (Version None)
Quarter: 2005Q3

REPORT INFORMATION
  Report Type: 
  Country: None (occurrence: None)
  Receive Date: 20050902
  Receipt Date: 20050415
  Transmission Date: 20060218
  Serious: No
  Sender: FDA-Public Use
  Company Number: US-GLAXOSMITHKLINE-A0554506A

PATIENT
  Age: 67 Year
  Sex: Female

DRUGS (3)
  1. REQUIP [Suspect]
     Indication: PARKINSON'S DISEASE
     Dosage: 9MG UNKNOWN
     Route: 048
  2. AMANTADINE [Concomitant]
  3. VIOXX [Concomitant]

REACTIONS (2)
  - FLUID RETENTION [None]
  - FLUSHING [None]
